FAERS Safety Report 9458742 (Version 1)
Quarter: 2013Q3

REPORT INFORMATION
  Report Type: Not Available
  Country: US (occurrence: US)
  Receive Date: 20130814
  Receipt Date: 20130814
  Transmission Date: 20140515
  Serious: No
  Sender: FDA-Public Use
  Company Number: US-TARO-2012P1049227

PATIENT
  Age: 28 Year
  Sex: Male
  Weight: 90.72 kg

DRUGS (1)
  1. FLUOCINONIDE CREAM USP 0.05% [Suspect]
     Indication: RASH
     Route: 061
     Dates: start: 201202

REACTIONS (1)
  - Application site irritation [Not Recovered/Not Resolved]
